FAERS Safety Report 4519446-6 (Version None)
Quarter: 2004Q4

REPORT INFORMATION
  Report Type: 
  Country: None (occurrence: None)
  Receive Date: 20041202
  Receipt Date: 20041119
  Transmission Date: 20050328
  Serious: Yes (Hospitalization)
  Sender: FDA-Public Use
  Company Number: 2004097529

PATIENT
  Age: 75 Year
  Sex: Male

DRUGS (5)
  1. DOXORUBICIN HCL [Suspect]
     Indication: NON-HODGKIN'S LYMPHOMA
     Dosage: 50 MG (CYCLICAL), INTRAVENOUS
     Route: 042
     Dates: start: 20040408
  2. CYCLOPHOSPHAMIDE [Suspect]
     Indication: NON-HODGKIN'S LYMPHOMA
     Dosage: 750 MG (CYCLICAL); INTRAVENOUS
     Route: 042
     Dates: start: 20040408
  3. VINCRISTINE [Suspect]
     Indication: NON-HODGKIN'S LYMPHOMA
     Dosage: 1.4 MG (CYCLICAL); INTRAVENOUS
     Route: 042
     Dates: start: 20040408
  4. RITUXIMAB       (RITUXIMAB) [Suspect]
     Indication: NON-HODGKIN'S LYMPHOMA
     Dosage: 375 MG (CYCLICAL); INTRAVENOUS
     Route: 042
     Dates: start: 20040408
  5. PREDNISONE [Concomitant]

REACTIONS (4)
  - BLOOD CULTURE POSITIVE [None]
  - INTERSTITIAL LUNG DISEASE [None]
  - NEUTROPENIA [None]
  - STAPHYLOCOCCAL INFECTION [None]
